FAERS Safety Report 23831169 (Version 1)
Quarter: 2024Q2

REPORT INFORMATION
  Report Type: Spontaneous
  Country: US (occurrence: US)
  Receive Date: 20240508
  Receipt Date: 20240508
  Transmission Date: 20240716
  Serious: No
  Sender: FDA-Public Use
  Company Number: US-BIOGEN-2024BI01257177

PATIENT
  Age: 39 Year
  Sex: Female

DRUGS (2)
  1. VUMERITY [Suspect]
     Active Substance: DIROXIMEL FUMARATE
     Indication: Multiple sclerosis
     Route: 050
     Dates: start: 20240315
  2. VUMERITY [Suspect]
     Active Substance: DIROXIMEL FUMARATE
     Route: 050
     Dates: start: 20240322, end: 202404

REACTIONS (3)
  - Rash pruritic [Unknown]
  - Flushing [Recovered/Resolved with Sequelae]
  - Feeling hot [Unknown]

NARRATIVE: CASE EVENT DATE: 20240301
